FAERS Safety Report 16074214 (Version 1)
Quarter: 2019Q1

REPORT INFORMATION
  Report Type: Spontaneous
  Country: IT (occurrence: IT)
  Receive Date: 20190314
  Receipt Date: 20190314
  Transmission Date: 20190418
  Serious: Yes (Hospitalization)
  Sender: FDA-Public Use
  Company Number: IT-TEVA-2019-IT-1023673

PATIENT
  Age: 56 Year
  Sex: Female

DRUGS (9)
  1. ESCITALOPRAM OXALATE. [Suspect]
     Active Substance: ESCITALOPRAM OXALATE
     Indication: DEPRESSION
     Dates: start: 20180821, end: 20180822
  2. ACIDO ALENDRONICO SALE SODICO TRIIDRATO/COLECALCIFEROLO [Concomitant]
     Route: 048
  3. PARACETAMOL [Concomitant]
     Active Substance: ACETAMINOPHEN
  4. PANTOPRAZOLE SODIUM SESQUIHYDRATE [Concomitant]
     Active Substance: PANTOPRAZOLE SODIUM
  5. URBASON 4 MG COMPRESSE [Concomitant]
     Active Substance: METHYLPREDNISOLONE
  6. COAPROVEL 300/12.5MG TABLETS [Suspect]
     Active Substance: HYDROCHLOROTHIAZIDE\IRBESARTAN
     Indication: HYPERTENSION
     Dosage: 312.5 MILLIGRAM DAILY;
     Route: 048
     Dates: start: 20180821, end: 20180822
  7. ALPRAZOLAM ABC 0,75 MG/ML GOCCE ORALI, SOLUZIONE [Concomitant]
  8. EUTIROX 75 MICROGRAMMI COMPRESSE [Concomitant]
     Active Substance: LEVOTHYROXINE SODIUM
  9. COLECALCIFEROL [Concomitant]
     Active Substance: CHOLECALCIFEROL

REACTIONS (4)
  - Nausea [Recovered/Resolved]
  - Hyponatraemia [Recovered/Resolved]
  - Hypochloraemia [Recovered/Resolved]
  - Asthenia [Recovered/Resolved]

NARRATIVE: CASE EVENT DATE: 20180822
